FAERS Safety Report 7402648-9 (Version None)
Quarter: 2011Q2

REPORT INFORMATION
  Report Type: 
  Country: None (occurrence: None)
  Receive Date: 20110408
  Receipt Date: 20110404
  Transmission Date: 20111010
  Serious: Yes (Other)
  Sender: FDA-Public Use
  Company Number: US-PFIZER INC-2011074482

PATIENT
  Sex: Male
  Weight: 99.773 kg

DRUGS (1)
  1. IBUPROFEN (ADVIL) [Suspect]
     Indication: ARTHROPATHY
     Dosage: 200 MG, TWO TO THREE TIMES A DAY
     Route: 048
     Dates: end: 20110323

REACTIONS (1)
  - URTICARIA [None]
